FAERS Safety Report 6469592-5 (Version None)
Quarter: 2009Q4

REPORT INFORMATION
  Report Type: 
  Country: None (occurrence: None)
  Receive Date: 20091202
  Receipt Date: 20091202
  Transmission Date: 20100525
  Serious: No
  Sender: FDA-Public Use
  Company Number: None

PATIENT
  Sex: Female
  Weight: 56.6996 kg

DRUGS (3)
  1. OXYCODONE AND ACETAMINOPHEN [Suspect]
     Indication: ARTHRALGIA
     Dosage: 1/2 OR 1 TABLET AS DIRECTOR PO
     Route: 048
     Dates: start: 20091125, end: 20091130
  2. OXYCODONE AND ACETAMINOPHEN [Suspect]
     Indication: BACK PAIN
     Dosage: 1/2 OR 1 TABLET AS DIRECTOR PO
     Route: 048
     Dates: start: 20091125, end: 20091130
  3. OXYCODONE AND ACETAMINOPHEN [Suspect]
     Indication: PAIN IN EXTREMITY
     Dosage: 1/2 OR 1 TABLET AS DIRECTOR PO
     Route: 048
     Dates: start: 20091125, end: 20091130

REACTIONS (5)
  - DRUG INEFFECTIVE [None]
  - EXPIRED DRUG ADMINISTERED [None]
  - INSOMNIA [None]
  - PAIN [None]
  - PRODUCT SUBSTITUTION ISSUE [None]
